FAERS Safety Report 8072035-1 (Version None)
Quarter: 2011Q4

REPORT INFORMATION
  Report Type: 
  Country: None (occurrence: None)
  Receive Date: 20111221
  Receipt Date: 20110629
  Transmission Date: 20120403
  Serious: Yes (Death, Hospitalization)
  Sender: FDA-Public Use
  Company Number: PHHY2011US46356

PATIENT
  Age: 63 Year
  Sex: Female

DRUGS (1)
  1. EXJADE [Suspect]
     Indication: MYELOID LEUKAEMIA
     Dosage: 1500 MG, QD, ORAL
     Route: 048

REACTIONS (3)
  - NEOPLASM PROGRESSION [None]
  - DIARRHOEA [None]
  - NEOPLASM MALIGNANT [None]
